FAERS Safety Report 12468092 (Version 1)
Quarter: 2016Q2

REPORT INFORMATION
  Report Type: Spontaneous
  Country: MX (occurrence: MX)
  Receive Date: 20160615
  Receipt Date: 20160615
  Transmission Date: 20160815
  Serious: Yes (Other)
  Sender: FDA-Public Use
  Company Number: MX-PFIZER INC-2016296830

PATIENT
  Age: 65 Year
  Sex: Female

DRUGS (2)
  1. DOSTINEX [Suspect]
     Active Substance: CABERGOLINE
     Indication: BLOOD GROWTH HORMONE
     Dosage: 0.5 MG, UNK
     Route: 048
     Dates: start: 2011
  2. DOSTINEX [Suspect]
     Active Substance: CABERGOLINE
     Indication: NEOPLASM

REACTIONS (3)
  - Head deformity [Not Recovered/Not Resolved]
  - Breast enlargement [Not Recovered/Not Resolved]
  - Peripheral swelling [Not Recovered/Not Resolved]

NARRATIVE: CASE EVENT DATE: 2011
